FAERS Safety Report 12497951 (Version 2)
Quarter: 2016Q3

REPORT INFORMATION
  Report Type: Spontaneous
  Country: US (occurrence: US)
  Receive Date: 20160626
  Receipt Date: 20160819
  Transmission Date: 20161109
  Serious: Yes (Death, Other)
  Sender: FDA-Public Use
  Company Number: PHEH2016US015704

PATIENT
  Age: 64 Year
  Sex: Female
  Weight: 56.82 kg

DRUGS (5)
  1. EVEROLIMUS [Suspect]
     Active Substance: EVEROLIMUS
     Indication: GLIOBLASTOMA MULTIFORME
     Dosage: 5 MG, QD
     Route: 048
     Dates: start: 201605, end: 201606
  2. VOTRIENT [Suspect]
     Active Substance: PAZOPANIB HYDROCHLORIDE
     Indication: GLIOBLASTOMA MULTIFORME
  3. DASATINIB [Concomitant]
     Active Substance: DASATINIB
     Indication: GLIOBLASTOMA MULTIFORME
     Dosage: 50 MG, QD
     Route: 048
     Dates: start: 201605, end: 201606
  4. BEVACIZUMAB [Concomitant]
     Active Substance: BEVACIZUMAB
     Indication: GLIOBLASTOMA MULTIFORME
     Dosage: 10 MG, Q2W
     Route: 042
     Dates: start: 20151015, end: 20160602
  5. VOTRIENT [Suspect]
     Active Substance: PAZOPANIB HYDROCHLORIDE
     Indication: BRAIN NEOPLASM MALIGNANT
     Dosage: 200 MG, QD
     Route: 048
     Dates: start: 20160524, end: 201606

REACTIONS (3)
  - Malignant neoplasm progression [Unknown]
  - Product use issue [Unknown]
  - Death [Fatal]

NARRATIVE: CASE EVENT DATE: 20160524
